FAERS Safety Report 13070319 (Version 2)
Quarter: 2024Q3

REPORT INFORMATION
  Report Type: Spontaneous
  Country: US (occurrence: US)
  Receive Date: 20161228
  Receipt Date: 20240802
  Transmission Date: 20241017
  Serious: No
  Sender: MERCK
  Company Number: US-009507513-1612USA008925

PATIENT

DRUGS (2)
  1. EMEND [Interacting]
     Active Substance: APREPITANT
     Indication: Prophylaxis of nausea and vomiting
     Route: 048
  2. COLCHICINE [Interacting]
     Active Substance: COLCHICINE

REACTIONS (1)
  - Drug interaction [Unknown]
